FAERS Safety Report 9970886 (Version 1)
Quarter: 2014Q1

REPORT INFORMATION
  Report Type: Spontaneous
  Country: US (occurrence: None)
  Receive Date: 20140305
  Receipt Date: 20140305
  Transmission Date: 20141002
  Serious: Yes (Disabling)
  Sender: FDA-Public Use
  Company Number: None

PATIENT
  Age: 54 Year
  Sex: Female
  Weight: 54.43 kg

DRUGS (2)
  1. TAMOXIFEN CITRATE [Suspect]
     Indication: BREAST CANCER
     Dosage: 1 PILL
     Route: 048
     Dates: start: 20090930, end: 20140215
  2. TAMOXIFEN CITRATE [Suspect]
     Indication: PROPHYLAXIS
     Dosage: 1 PILL
     Route: 048
     Dates: start: 20090930, end: 20140215

REACTIONS (3)
  - Pelvic pain [None]
  - Dysuria [None]
  - Muscle spasms [None]
